FAERS Safety Report 6982576-3 (Version None)
Quarter: 2010Q3

REPORT INFORMATION
  Report Type: 
  Country: None (occurrence: None)
  Receive Date: 20100914
  Receipt Date: 20100210
  Transmission Date: 20110219
  Serious: No
  Sender: FDA-Public Use
  Company Number: US-PFIZER INC-2010018185

PATIENT
  Sex: Male
  Weight: 78 kg

DRUGS (4)
  1. LYRICA [Suspect]
     Indication: FIBROMYALGIA
     Dosage: 75 MG, 3X/DAY
     Route: 048
     Dates: start: 20090601
  2. LYRICA [Suspect]
     Dosage: 200 MG, 3X/DAY
     Dates: end: 20090801
  3. VYTORIN [Concomitant]
     Dosage: [EZETIMIBE 10 MG]/[SIMVASTATIN 40 MG], ONCE A DAY
     Route: 048
  4. LISINOPRIL [Concomitant]
     Indication: HYPERTENSION
     Dosage: 10 MG, 1X/DAY
     Route: 048

REACTIONS (6)
  - ABDOMINAL PAIN UPPER [None]
  - EJACULATION DISORDER [None]
  - HOT FLUSH [None]
  - HYPERHIDROSIS [None]
  - MUSCLE SPASMS [None]
  - VISION BLURRED [None]
